FAERS Safety Report 14617246 (Version 3)
Quarter: 2018Q3

REPORT INFORMATION
  Report Type: Report from Study
  Country: None (occurrence: US)
  Receive Date: 20180309
  Receipt Date: 20180810
  Transmission Date: 20181010
  Serious: Yes (Other)
  Sender: FDA-Public Use
  Company Number: US-ABBVIE-18K-163-2277894-00

PATIENT
  Sex: Female

DRUGS (2)
  1. HUMIRA [Suspect]
     Active Substance: ADALIMUMAB
     Indication: CROHN^S DISEASE
  2. HUMIRA [Suspect]
     Active Substance: ADALIMUMAB
     Indication: COLITIS ULCERATIVE
     Route: 058

REACTIONS (15)
  - Blood triglycerides increased [Not Recovered/Not Resolved]
  - Sinusitis [Recovered/Resolved]
  - Ocular hyperaemia [Recovering/Resolving]
  - Depression [Unknown]
  - Stress [Not Recovered/Not Resolved]
  - Diarrhoea [Not Recovered/Not Resolved]
  - Headache [Recovered/Resolved]
  - Iron deficiency [Recovering/Resolving]
  - Polyp [Recovering/Resolving]
  - Calcium deficiency [Recovering/Resolving]
  - Swelling face [Recovering/Resolving]
  - Anxiety [Not Recovered/Not Resolved]
  - Vitamin B12 deficiency [Not Recovered/Not Resolved]
  - Renal disorder [Not Recovered/Not Resolved]
  - Muscle atrophy [Unknown]
